FAERS Safety Report 7456467-8 (Version None)
Quarter: 2011Q2

REPORT INFORMATION
  Report Type: 
  Country: None (occurrence: None)
  Receive Date: 20110503
  Receipt Date: 20110224
  Transmission Date: 20111010
  Serious: Yes (Hospitalization, Other)
  Sender: FDA-Public Use
  Company Number: RO-BAYER-2010-003324

PATIENT
  Age: 53 Year
  Sex: Female
  Weight: 56 kg

DRUGS (93)
  1. SORAFENIB (RAF KINASE INHIBITOR) [Suspect]
     Dosage: 400 MG, QD
     Route: 048
     Dates: start: 20100208, end: 20100208
  2. SORAFENIB (RAF KINASE INHIBITOR) [Suspect]
     Dosage: 400 MG, BID
     Route: 048
     Dates: start: 20101215
  3. ADDITIONAL STUDY MEDICATION [Suspect]
     Dosage: DOSE 85.00 / TOTAL DOSE GIVEN 134.00
     Route: 042
     Dates: start: 20100414, end: 20100414
  4. ADDITIONAL STUDY MEDICATION [Suspect]
     Dosage: DOSE 85.00 / TOTAL DOSE GIVEN 134.00
     Route: 042
     Dates: start: 20100512, end: 20100512
  5. ADDITIONAL STUDY MEDICATION [Suspect]
     Dosage: DOSE 85.00 / TOTAL DOSE GIVEN 134.00
     Route: 042
     Dates: start: 20100825, end: 20100825
  6. ADDITIONAL STUDY MEDICATION [Suspect]
     Dosage: DOSE 400.00 / TOTAL DOSE GIVEN 620.00
     Route: 042
     Dates: start: 20100707, end: 20100707
  7. ADDITIONAL STUDY MEDICATION [Suspect]
     Dosage: DOSE 400.00 / TOTAL DOSE GIVEN 632.00
     Route: 042
     Dates: start: 20100811, end: 20100811
  8. ADDITIONAL STUDY MEDICATION [Suspect]
     Dosage: IV INFUSION (BOLUS) DOSE 400.00 / TOTAL DOSE GIVEN 648.00
     Route: 042
     Dates: start: 20100204, end: 20100204
  9. ADDITIONAL STUDY MEDICATION [Suspect]
     Dosage: IV INFUSION (BOLUS) DOSE 400.00 / TOTAL DOSE GIVEN 636.00
     Route: 042
     Dates: start: 20100304, end: 20100304
  10. ADDITIONAL STUDY MEDICATION [Suspect]
     Dosage: IV INFUSION (BOLUS) DOSE 400.00 / TOTAL DOSE GIVEN 632.00
     Route: 042
     Dates: start: 20100414, end: 20100414
  11. ADDITIONAL STUDY MEDICATION [Suspect]
     Dosage: IV INFUSION (BOLUS) DOSE 320.00 / TOTAL DOSE GIVEN 499.00
     Dates: start: 20100721
  12. ADDITIONAL STUDY MEDICATION [Suspect]
     Dosage: IV INFUSION (BOLUS) DOSE 400.00 / TOTAL DOSE GIVEN 632.00
     Dates: start: 20100929
  13. SORAFENIB (RAF KINASE INHIBITOR) [Suspect]
     Dosage: 400 MG, BID
     Route: 048
     Dates: start: 20100215, end: 20100414
  14. SORAFENIB (RAF KINASE INHIBITOR) [Suspect]
     Dosage: 400 MG, QD
     Dates: start: 20100415, end: 20100415
  15. ADDITIONAL STUDY MEDICATION [Suspect]
     Dosage: DOSE 85.00 / TOTAL DOSE GIVEN 134.00
     Route: 042
     Dates: start: 20100929, end: 20100929
  16. ADDITIONAL STUDY MEDICATION [Suspect]
     Dosage: DOSE 65.00 / TOTAL DOSE GIVEN 101.00
     Route: 042
     Dates: start: 20101027, end: 20101027
  17. ADDITIONAL STUDY MEDICATION [Suspect]
     Dosage: DOSE 400.00 / TOTAL DOSE GIVEN 636.00
     Route: 042
     Dates: start: 20100317, end: 20100317
  18. ADDITIONAL STUDY MEDICATION [Suspect]
     Dosage: DOSE 400.00 / TOTAL DOSE GIVEN 624.00
     Route: 042
     Dates: start: 20100721, end: 20100721
  19. ADDITIONAL STUDY MEDICATION [Suspect]
     Dosage: DOSE 400.00 / TOTAL DOSE GIVEN 632.00
     Route: 042
     Dates: start: 20100825, end: 20100825
  20. ADDITIONAL STUDY MEDICATION [Suspect]
     Dosage: DOSE 400.00 / TOTAL DOSE GIVEN 616.00
     Route: 042
     Dates: start: 20101124, end: 20101124
  21. ADDITIONAL STUDY MEDICATION [Suspect]
     Dosage: IV INFUSION (CONTINUOUS INFUSION) DOSE 2400.00 / TOTAL DOSE GIVEN 3816.00.00
     Route: 042
     Dates: start: 20100317, end: 20100319
  22. ADDITIONAL STUDY MEDICATION [Suspect]
     Dosage: IV INFUSION (BOLUS) DOSE 400.00 / TOTAL DOSE GIVEN 632.00
     Route: 042
     Dates: start: 20100428, end: 20100428
  23. ADDITIONAL STUDY MEDICATION [Suspect]
     Dosage: IV INFUSION (BOLUS) DOSE 400.00 / TOTAL DOSE GIVEN 624.00
     Route: 042
     Dates: start: 20100609
  24. ADDITIONAL STUDY MEDICATION [Suspect]
     Dosage: IV INFUSION (BOLUS) DOSE 400.00 / TOTAL DOSE GIVEN 624.00
     Route: 042
     Dates: start: 20100623
  25. ADDITIONAL STUDY MEDICATION [Suspect]
     Dosage: IV INFUSION (BOLUS) DOSE 400.00 / TOTAL DOSE GIVEN 632.00
     Dates: start: 20100825
  26. ADDITIONAL STUDY MEDICATION [Suspect]
     Dosage: IV INFUSION (CONTINUOUS INFUSION) DOSE 1920.00 / TOTAL DOSE GIVEN 2995.00.00
     Dates: start: 20101027, end: 20101029
  27. ADDITIONAL STUDY MEDICATION [Suspect]
     Dosage: IV INFUSION (BOLUS) DOSE 270.00 / TOTAL DOSE GIVEN 421.00
     Dates: start: 20101110
  28. SORAFENIB (RAF KINASE INHIBITOR) [Suspect]
     Dosage: 400 MG, BID
     Route: 048
     Dates: start: 20100422, end: 20101207
  29. ADDITIONAL STUDY MEDICATION [Suspect]
     Dosage: DOSE 85.00 / TOTAL DOSE GIVEN 137.00
     Route: 042
     Dates: start: 20100218, end: 20100218
  30. ADDITIONAL STUDY MEDICATION [Suspect]
     Dosage: DOSE 85.00 / TOTAL DOSE GIVEN 134.00
     Route: 042
     Dates: start: 20100526, end: 20100526
  31. ADDITIONAL STUDY MEDICATION [Suspect]
     Dosage: DOSE 400.00 / TOTAL DOSE GIVEN 632.00
     Route: 042
     Dates: start: 20100512, end: 20100512
  32. ADDITIONAL STUDY MEDICATION [Suspect]
     Dosage: DOSE 400.00 / TOTAL DOSE GIVEN 624.00
     Route: 042
     Dates: start: 20101027, end: 20101027
  33. ADDITIONAL STUDY MEDICATION [Suspect]
     Dosage: DOSE 400.00 / TOTAL DOSE GIVEN 624.00
     Route: 042
     Dates: start: 20101110, end: 20101110
  34. ADDITIONAL STUDY MEDICATION [Suspect]
     Dosage: IV INFUSION (BOLUS) DOSE 400.00 / TOTAL DOSE GIVEN 636.00
     Route: 042
     Dates: start: 20100317, end: 20100317
  35. ADDITIONAL STUDY MEDICATION [Suspect]
     Dosage: IV INFUSION (CONTINUOUS INFUSION) DOSE 2400.00 / TOTAL DOSE GIVEN 3792.00.00
     Route: 042
     Dates: start: 20100414, end: 20100416
  36. ADDITIONAL STUDY MEDICATION [Suspect]
     Dosage: IV INFUSION (CONTINUOUS INFUSION) DOSE 2400.00 / TOTAL DOSE GIVEN 3792.00.00
     Route: 042
     Dates: start: 20100428, end: 20100430
  37. ADDITIONAL STUDY MEDICATION [Suspect]
     Dosage: IV INFUSION (CONTINUOUS INFUSION) DOSE 2400.00 / TOTAL DOSE GIVEN 3792.00.00
     Route: 042
     Dates: start: 20100526, end: 20100528
  38. ADDITIONAL STUDY MEDICATION [Suspect]
     Dosage: IV INFUSION (BOLUS) DOSE 320.00 / TOTAL DOSE GIVEN 492.00
     Dates: start: 20101124
  39. ADDITIONAL STUDY MEDICATION [Suspect]
     Dosage: IV INFUSION (BOLUS) DOSE 320.00 / TOTAL DOSE GIVEN 500.00
     Dates: start: 20101027
  40. ADDITIONAL STUDY MEDICATION [Suspect]
     Dosage: IV INFUSION (CONTINUOUS INFUSION) DOSE 1600.00 / TOTAL DOSE GIVEN 2496.00.00
     Route: 042
     Dates: start: 20101110, end: 20101112
  41. ADDITIONAL STUDY MEDICATION [Suspect]
     Dosage: DOSE 85.00 / TOTAL DOSE GIVEN 135.00
     Route: 042
     Dates: start: 20100304, end: 20100304
  42. ADDITIONAL STUDY MEDICATION [Suspect]
     Dosage: DOSE 85.00 / TOTAL DOSE GIVEN 132.00
     Route: 042
     Dates: start: 20100707, end: 20100707
  43. ADDITIONAL STUDY MEDICATION [Suspect]
     Dosage: DOSE 400.00 / TOTAL DOSE GIVEN 632.00
     Route: 042
     Dates: start: 20100916, end: 20100916
  44. ADDITIONAL STUDY MEDICATION [Suspect]
     Dosage: IV INFUSION (BOLUS) DOSE 400.00 / TOTAL DOSE GIVEN 632.00
     Route: 042
     Dates: start: 20100512, end: 20100512
  45. ADDITIONAL STUDY MEDICATION [Suspect]
     Dosage: IV INFUSION (BOLUS) DOSE 400.00 / TOTAL DOSE GIVEN 632.00
     Dates: start: 20100811
  46. ADDITIONAL STUDY MEDICATION [Suspect]
     Dosage: DOSE 85.00 / TOTAL DOSE GIVEN 134.00
     Route: 042
     Dates: start: 20100331, end: 20100331
  47. ADDITIONAL STUDY MEDICATION [Suspect]
     Dosage: DOSE 85.00 / TOTAL DOSE GIVEN 134.00
     Route: 042
     Dates: start: 20100428, end: 20100428
  48. ADDITIONAL STUDY MEDICATION [Suspect]
     Dosage: DOSE 85.00 / TOTAL DOSE GIVEN 133.00
     Route: 042
     Dates: start: 20100623, end: 20100623
  49. ADDITIONAL STUDY MEDICATION [Suspect]
     Dosage: DOSE 65.00 / TOTAL DOSE GIVEN 101.00
     Route: 042
     Dates: start: 20100721, end: 20100721
  50. ADDITIONAL STUDY MEDICATION [Suspect]
     Dosage: DOSE 400.00 / TOTAL DOSE GIVEN 632.00
     Route: 042
     Dates: start: 20100414, end: 20100414
  51. ADDITIONAL STUDY MEDICATION [Suspect]
     Dosage: DOSE 400.00 / TOTAL DOSE GIVEN 632.00
     Route: 042
     Dates: start: 20100526, end: 20100526
  52. ADDITIONAL STUDY MEDICATION [Suspect]
     Dosage: DOSE 400.00 / TOTAL DOSE GIVEN 624.00
     Route: 042
     Dates: start: 20100623, end: 20100623
  53. ADDITIONAL STUDY MEDICATION [Suspect]
     Dosage: DOSE 400.00 / TOTAL DOSE GIVEN 632.00
     Route: 042
     Dates: start: 20100929, end: 20100929
  54. ADDITIONAL STUDY MEDICATION [Suspect]
     Dosage: IV INFUSION (BOLUS) DOSE 400.00 / TOTAL DOSE GIVEN 648.00
     Route: 042
     Dates: start: 20100218, end: 20100218
  55. ADDITIONAL STUDY MEDICATION [Suspect]
     Dosage: IV INFUSION (CONTINUOUS INFUSION) DOSE 1920.00 / TOTAL DOSE GIVEN 2995.00.00
     Dates: start: 20100721, end: 20100723
  56. ADDITIONAL STUDY MEDICATION [Suspect]
     Dosage: IV INFUSION (CONTINUOUS INFUSION) DOSE 2400.00 / TOTAL DOSE GIVEN 3792.00.00
     Dates: start: 20100825, end: 20100827
  57. ADDITIONAL STUDY MEDICATION [Suspect]
     Dosage: IV INFUSION (CONTINUOUS INFUSION) DOSE 2400.00 / TOTAL DOSE GIVEN 3792.00.00
     Dates: start: 20100916, end: 20100918
  58. LOKREN [Concomitant]
     Indication: HYPERTENSION
     Dosage: DAILY DOSE 10 MG
     Dates: start: 20060101
  59. SORAFENIB (RAF KINASE INHIBITOR) [Suspect]
     Dosage: 400 MG, QD
     Route: 048
     Dates: start: 20100421, end: 20100421
  60. ADDITIONAL STUDY MEDICATION [Suspect]
     Indication: COLORECTAL CANCER METASTATIC
     Dosage: DOSE 85.00 / TOTAL DOSE GIVEN 137.00
     Route: 042
     Dates: start: 20100204, end: 20100204
  61. ADDITIONAL STUDY MEDICATION [Suspect]
     Dosage: DOSE 50.00 / TOTAL DOSE GIVEN 78.00
     Route: 042
     Dates: start: 20101110, end: 20101110
  62. ADDITIONAL STUDY MEDICATION [Suspect]
     Dosage: DOSE 400.00 / TOTAL DOSE GIVEN 624.00
     Route: 042
     Dates: start: 20100609, end: 20100609
  63. ADDITIONAL STUDY MEDICATION [Suspect]
     Dosage: IV INFUSION (CONTINUOUS INFUSION) DOSE 2400.00 / TOTAL DOSE GIVEN 3888.00.00
     Route: 042
     Dates: start: 20100218, end: 20100220
  64. ADDITIONAL STUDY MEDICATION [Suspect]
     Dosage: IV INFUSION (BOLUS) DOSE 400.00 / TOTAL DOSE GIVEN 632.00
     Route: 042
     Dates: start: 20100331, end: 20100331
  65. ADDITIONAL STUDY MEDICATION [Suspect]
     Dosage: IV INFUSION (CONTINUOUS INFUSION) DOSE 2400.00 / TOTAL DOSE GIVEN 3792.00.00
     Route: 042
     Dates: start: 20100512, end: 20100514
  66. ADDITIONAL STUDY MEDICATION [Suspect]
     Dosage: IV INFUSION (CONTINUOUS INFUSION) DOSE 2400.00 / TOTAL DOSE GIVEN 3744.00.00
     Route: 042
     Dates: start: 20100609, end: 20100611
  67. ADDITIONAL STUDY MEDICATION [Suspect]
     Dosage: IV INFUSION (CONTINUOUS INFUSION) DOSE 2400.00 / TOTAL DOSE GIVEN 3792.00.00
     Dates: start: 20100929, end: 20101001
  68. SORAFENIB (RAF KINASE INHIBITOR) [Suspect]
     Dosage: 0 MG, UNK
     Dates: start: 20100209, end: 20100213
  69. ADDITIONAL STUDY MEDICATION [Suspect]
     Dosage: DOSE 85.00 / TOTAL DOSE GIVEN 132.00
     Route: 042
     Dates: start: 20100609, end: 20100609
  70. ADDITIONAL STUDY MEDICATION [Suspect]
     Dosage: DOSE 85.00 / TOTAL DOSE GIVEN 134.00
     Route: 042
     Dates: start: 20100811, end: 20100811
  71. ADDITIONAL STUDY MEDICATION [Suspect]
     Dosage: DOSE 85.00 / TOTAL DOSE GIVEN 134.00
     Route: 042
     Dates: start: 20100916, end: 20100916
  72. ADDITIONAL STUDY MEDICATION [Suspect]
     Dosage: DOSE 400.00 / TOTAL DOSE GIVEN 648.00
     Route: 042
     Dates: start: 20100218, end: 20100218
  73. ADDITIONAL STUDY MEDICATION [Suspect]
     Dosage: DOSE 400.00 / TOTAL DOSE GIVEN 636.00
     Route: 042
     Dates: start: 20100304, end: 20100304
  74. ADDITIONAL STUDY MEDICATION [Suspect]
     Dosage: DOSE 400.00 / TOTAL DOSE GIVEN 632.00
     Route: 042
     Dates: start: 20100331, end: 20100331
  75. ADDITIONAL STUDY MEDICATION [Suspect]
     Dosage: DOSE 400.00 / TOTAL DOSE GIVEN 632.00
     Route: 042
     Dates: start: 20100428, end: 20100428
  76. ADDITIONAL STUDY MEDICATION [Suspect]
     Dosage: IV INFUSION (CONTINUOUS INFUSION) DOSE 2400.00 / TOTAL DOSE GIVEN 3888.00.00
     Route: 042
     Dates: start: 20100204, end: 20100206
  77. ADDITIONAL STUDY MEDICATION [Suspect]
     Dosage: IV INFUSION (CONTINUOUS INFUSION) DOSE 2400.00 / TOTAL DOSE GIVEN 3792.00.00
     Route: 042
     Dates: start: 20100331, end: 20100402
  78. ADDITIONAL STUDY MEDICATION [Suspect]
     Dosage: IV INFUSION (BOLUS) DOSE 400.00 / TOTAL DOSE GIVEN 632.00
     Route: 042
     Dates: start: 20100526, end: 20100526
  79. ADDITIONAL STUDY MEDICATION [Suspect]
     Dosage: IV INFUSION (BOLUS) DOSE 400.00 / TOTAL DOSE GIVEN 620.00
     Route: 042
     Dates: start: 20100707
  80. ADDITIONAL STUDY MEDICATION [Suspect]
     Dosage: IV INFUSION (CONTINUOUS INFUSION) DOSE 2400.00 / TOTAL DOSE GIVEN 3720.00.00
     Dates: start: 20100707, end: 20100709
  81. ADDITIONAL STUDY MEDICATION [Suspect]
     Dosage: IV INFUSION (CONTINUOUS INFUSION) DOSE 2400.00 / TOTAL DOSE GIVEN 3792.00.00
     Dates: start: 20100811, end: 20100813
  82. ADDITIONAL STUDY MEDICATION [Suspect]
     Dosage: IV INFUSION (BOLUS) DOSE 400.00 / TOTAL DOSE GIVEN 632.00
     Dates: start: 20100916
  83. SORAFENIB (RAF KINASE INHIBITOR) [Suspect]
     Indication: COLORECTAL CANCER METASTATIC
     Dosage: 400 MG, QD
     Route: 048
     Dates: start: 20100204, end: 20100204
  84. SORAFENIB (RAF KINASE INHIBITOR) [Suspect]
     Dosage: 400 MG, BID
     Route: 048
     Dates: start: 20100205, end: 20100207
  85. SORAFENIB (RAF KINASE INHIBITOR) [Suspect]
     Dosage: 400 MG, QD
     Route: 048
     Dates: start: 20100214, end: 20100214
  86. ADDITIONAL STUDY MEDICATION [Suspect]
     Dosage: DOSE 85.00 / TOTAL DOSE GIVEN 135.00
     Route: 042
     Dates: start: 20100317, end: 20100317
  87. ADDITIONAL STUDY MEDICATION [Suspect]
     Dosage: DOSE 65.00 / TOTAL DOSE GIVEN 100.00
     Route: 042
     Dates: start: 20101124, end: 20101124
  88. ADDITIONAL STUDY MEDICATION [Suspect]
     Dosage: DOSE 400.00 / TOTAL DOSE GIVEN 648.00
     Route: 042
     Dates: start: 20100204, end: 20100204
  89. ADDITIONAL STUDY MEDICATION [Suspect]
     Dosage: IV INFUSION (CONTINUOUS INFUSION) DOSE 2400.00 / TOTAL DOSE GIVEN 3816.00.00
     Route: 042
     Dates: start: 20100304, end: 20100306
  90. ADDITIONAL STUDY MEDICATION [Suspect]
     Dosage: IV INFUSION (CONTINUOUS INFUSION) DOSE 2400.00 / TOTAL DOSE GIVEN 3744.00.00
     Route: 042
     Dates: start: 20100623, end: 20100625
  91. ADDITIONAL STUDY MEDICATION [Suspect]
     Dosage: IV INFUSION (CONTINUOUS INFUSION) DOSE 1920.00 / TOTAL DOSE GIVEN 2956.00.00
     Dates: start: 20101124, end: 20101126
  92. DEXAMETHASONE [Concomitant]
     Indication: PREMEDICATION
     Dosage: DAILY DOSE 16 MG
     Dates: start: 20100204, end: 20100204
  93. ZOFRAN [Concomitant]
     Dosage: DAILY DOSE 4 MG
     Dates: start: 20100204, end: 20100204

REACTIONS (2)
  - RETINAL VEIN THROMBOSIS [None]
  - RENAL FAILURE ACUTE [None]
